FAERS Safety Report 5530840-7 (Version None)
Quarter: 2007Q4

REPORT INFORMATION
  Report Type: 
  Country: None (occurrence: None)
  Receive Date: 20071130
  Receipt Date: 20071121
  Transmission Date: 20080405
  Serious: Yes (Death)
  Sender: FDA-Public Use
  Company Number: JP-WYE-H01389607

PATIENT
  Sex: Male
  Weight: 52 kg

DRUGS (3)
  1. MYLOTARG [Suspect]
     Indication: ACUTE MYELOID LEUKAEMIA
     Route: 041
     Dates: start: 20070319, end: 20070319
  2. ISEPACIN [Concomitant]
     Route: 041
     Dates: start: 20070320, end: 20070322
  3. CARBENIN [Concomitant]
     Route: 041
     Dates: start: 20070320, end: 20070322

REACTIONS (2)
  - PNEUMONIA [None]
  - PULMONARY HAEMORRHAGE [None]
